FAERS Safety Report 4849179-8 (Version None)
Quarter: 2005Q4

REPORT INFORMATION
  Report Type: 
  Country: None (occurrence: None)
  Receive Date: 20051209
  Receipt Date: 20051005
  Transmission Date: 20060501
  Serious: Yes (Death, Hospitalization)
  Sender: FDA-Public Use
  Company Number: US-MERCK-0510USA04618

PATIENT
  Age: 50 Year
  Sex: Male
  Weight: 77 kg

DRUGS (8)
  1. VIOXX [Suspect]
     Indication: NECK PAIN
     Route: 048
     Dates: start: 20000919, end: 20010125
  2. LIPITOR [Concomitant]
     Route: 065
  3. ISOSORBIDE [Concomitant]
     Route: 065
  4. CAPTOPRIL MSD [Concomitant]
     Route: 065
  5. DILTIAZEM MSD [Concomitant]
     Route: 065
  6. CARDIZEM [Concomitant]
     Route: 065
  7. ASPIRIN [Concomitant]
     Route: 065
  8. IBUPROFEN [Concomitant]
     Route: 065

REACTIONS (7)
  - ACUTE MYOCARDIAL INFARCTION [None]
  - CARDIO-RESPIRATORY ARREST [None]
  - ELECTROMECHANICAL DISSOCIATION [None]
  - LOSS OF CONSCIOUSNESS [None]
  - MYOCARDIAL INFARCTION [None]
  - SUDDEN DEATH [None]
  - VENTRICULAR FIBRILLATION [None]
